FAERS Safety Report 9352100 (Version 1)
Quarter: 2013Q2

REPORT INFORMATION
  Report Type: Spontaneous
  Country: FR (occurrence: None)
  Receive Date: 20130612
  Receipt Date: 20130612
  Transmission Date: 20140414
  Serious: Yes (Hospitalization)
  Sender: FDA-Public Use
  Company Number: SP06721

PATIENT
  Age: 60 Year
  Sex: Female

DRUGS (4)
  1. OSMOPREP [Suspect]
     Indication: BOWEL PREPARATION
     Dosage: (32 DOSAGES FORMS)
     Route: 048
     Dates: start: 20130502, end: 20130502
  2. COOLMETEC [Suspect]
     Dosage: 1 DOSAGE FORMS (1 DOSAGE FORMS, 1 IN 1 D),ORAL
     Route: 048
     Dates: end: 20130508
  3. CELIPROLOL [Concomitant]
  4. LEVOTHYROXINE [Concomitant]

REACTIONS (7)
  - Asthenia [None]
  - Nausea [None]
  - Tremor [None]
  - Renal failure acute [None]
  - Nephropathy [None]
  - Renal tubular necrosis [None]
  - Dehydration [None]
